FAERS Safety Report 5800339-9 (Version None)
Quarter: 2008Q3

REPORT INFORMATION
  Report Type: 
  Country: None (occurrence: None)
  Receive Date: 20080703
  Receipt Date: 20080520
  Transmission Date: 20090109
  Serious: No
  Sender: FDA-Public Use
  Company Number: A0728792A

PATIENT
  Sex: Male

DRUGS (6)
  1. ADVAIR DISKUS 100/50 [Suspect]
     Indication: ASTHMA
     Dosage: 2PUFF TWICE PER DAY
     Route: 055
  2. PULMICORT-100 [Concomitant]
  3. SINGULAIR [Concomitant]
  4. CLARINEX [Concomitant]
  5. XOPENEX [Concomitant]
  6. PREVACID [Concomitant]

REACTIONS (3)
  - CHRONIC SINUSITIS [None]
  - COUGH [None]
  - DRUG INEFFECTIVE [None]
